FAERS Safety Report 18533213 (Version 1)
Quarter: 2020Q4

REPORT INFORMATION
  Report Type: Report from Study
  Country: NL (occurrence: NL)
  Receive Date: 20201123
  Receipt Date: 20201123
  Transmission Date: 20210114
  Serious: Yes (Disabling, Other)
  Sender: FDA-Public Use
  Company Number: NVSC2020NL281558

PATIENT
  Age: 77 Year
  Sex: Female
  Weight: 73 kg

DRUGS (15)
  1. ACLASTA [Suspect]
     Active Substance: ZOLEDRONIC ACID
     Dosage: UNK UNK, UNKNOWN
     Route: 065
     Dates: start: 20190528, end: 20190606
  2. PANTOPRAZOLE [Concomitant]
     Active Substance: PANTOPRAZOLE
     Indication: PRODUCT USED FOR UNKNOWN INDICATION
     Dosage: 20 MG, BID
     Route: 048
  3. VASELINE CETOMACROGOL CREAM [Concomitant]
     Indication: SKIN DISORDER
     Dosage: UNK, TID
     Route: 065
  4. CUTIVATE [Concomitant]
     Active Substance: FLUTICASONE PROPIONATE
     Indication: HYDROPHOBIA
     Dosage: 0.05 MG/G, PRN (HYDROPHOBIC) (1 TUBE)
     Route: 003
  5. OXYCODONE [Concomitant]
     Active Substance: OXYCODONE
     Indication: PRODUCT USED FOR UNKNOWN INDICATION
     Dosage: 5 MG, Q4H (WHEN NEEDED)
     Route: 048
  6. ZINC OXIDE. [Concomitant]
     Active Substance: ZINC OXIDE
     Indication: PRODUCT USED FOR UNKNOWN INDICATION
     Dosage: 100 MG/G, QD (WHEN NEEDED)
     Route: 003
  7. ALGELDRATE [Concomitant]
     Active Substance: ALGELDRATE
     Indication: PRODUCT USED FOR UNKNOWN INDICATION
     Dosage: 15 ML, BID
     Route: 048
  8. HYLAN [Concomitant]
     Active Substance: CARBOXYPOLYMETHYLENE\HYALURONATE SODIUM
     Indication: PRODUCT USED FOR UNKNOWN INDICATION
     Dosage: UNK 0,15/0, 15MG/ML MINIMUM 0,65ML (1 DROP BOTH SIDES, AT NIGHT)
     Route: 047
  9. ACLASTA [Suspect]
     Active Substance: ZOLEDRONIC ACID
     Dosage: UNK UNK, UNKNOWN
     Route: 065
     Dates: start: 20201014
  10. ESTRIOL [Concomitant]
     Active Substance: ESTRIOL
     Indication: PRODUCT USED FOR UNKNOWN INDICATION
     Dosage: 1 MG/G, QW (1 APPLICATOR)
     Route: 067
  11. PANADOL [Concomitant]
     Active Substance: ACETAMINOPHEN
     Indication: OSTEOARTHRITIS
     Dosage: 1000 MG, QID (WHEN NEEDED)
     Route: 048
  12. ACLASTA [Suspect]
     Active Substance: ZOLEDRONIC ACID
     Indication: OSTEOPOROSIS
     Dosage: 5 MG (1.00 X PER 52 WEEKS)
     Route: 042
  13. ACLASTA [Suspect]
     Active Substance: ZOLEDRONIC ACID
     Dosage: UNK
     Route: 065
     Dates: start: 20200526
  14. LOSARTAN. [Concomitant]
     Active Substance: LOSARTAN
     Indication: PRODUCT USED FOR UNKNOWN INDICATION
     Dosage: 50 MG, BID
     Route: 048
  15. ACLASTA [Suspect]
     Active Substance: ZOLEDRONIC ACID
     Dosage: UNK UNK, UNKNOWN
     Route: 065
     Dates: start: 20180611

REACTIONS (6)
  - Joint dislocation [Recovering/Resolving]
  - Femur fracture [Recovering/Resolving]
  - Lower limb fracture [Recovering/Resolving]
  - Fall [Unknown]
  - Bone fragmentation [Recovering/Resolving]
  - Inappropriate schedule of product administration [Unknown]

NARRATIVE: CASE EVENT DATE: 20200603
